FAERS Safety Report 11616916 (Version 2)
Quarter: 2015Q4

REPORT INFORMATION
  Report Type: Spontaneous
  Country: US (occurrence: US)
  Receive Date: 20151009
  Receipt Date: 20151014
  Transmission Date: 20160304
  Serious: No
  Sender: FDA-Public Use
  Company Number: US-PFIZER INC-2015338909

PATIENT
  Age: 51 Year
  Sex: Male

DRUGS (6)
  1. TANZEUM [Concomitant]
     Active Substance: ALBIGLUTIDE
     Indication: BLOOD GLUCOSE ABNORMAL
     Dosage: 50 MG, WEEKLY
  2. NORCO [Concomitant]
     Active Substance: ACETAMINOPHEN\HYDROCODONE BITARTRATE
     Indication: BACK PAIN
     Dosage: 750 MG TABLET BY MOUTH, AS NEEDED, CAN TAKE UP TO 5 A DAY, AVERAGES THREE A DAY
     Route: 048
  3. CAVERJECT [Suspect]
     Active Substance: ALPROSTADIL
     Indication: ERECTILE DYSFUNCTION
     Dosage: 6 VIALS OF CAVERJECT 40 ?G (40MCG), UNK
  4. FENTANYL. [Concomitant]
     Active Substance: FENTANYL
     Indication: BACK PAIN
     Dosage: 50 ?G, ONE ON EVERY 72 HOURS
     Route: 062
  5. DEPO-TESTOSTERONE [Concomitant]
     Active Substance: TESTOSTERONE CYPIONATE
     Indication: BLOOD TESTOSTERONE DECREASED
     Dosage: 1 ML INJECTION, WEEKLY
  6. GLUCOPHAGE [Concomitant]
     Active Substance: METFORMIN HYDROCHLORIDE
     Indication: DIABETES MELLITUS
     Dosage: 1000 MG TABLET, 2X/DAY BY MOUTH
     Route: 048

REACTIONS (2)
  - Product quality issue [Unknown]
  - Injection site pain [Recovering/Resolving]

NARRATIVE: CASE EVENT DATE: 201506
